FAERS Safety Report 4377481-5 (Version None)
Quarter: 2004Q2

REPORT INFORMATION
  Report Type: 
  Country: None (occurrence: None)
  Receive Date: 20040609
  Receipt Date: 20040526
  Transmission Date: 20050107
  Serious: Yes (Hospitalization)
  Sender: FDA-Public Use
  Company Number: JP_040503230

PATIENT
  Age: 65 Year
  Sex: Male

DRUGS (5)
  1. ZYPREXA [Suspect]
     Indication: ALCOHOL WITHDRAWAL SYNDROME
     Dosage: 7.5 MG DAY
     Dates: start: 20040330, end: 20040518
  2. DIAZEPAM [Concomitant]
  3. SEROQUEL [Concomitant]
  4. VEGETAMIN B [Concomitant]
  5. NUROVITAN [Concomitant]

REACTIONS (1)
  - HEPATIC FUNCTION ABNORMAL [None]
